FAERS Safety Report 10072150 (Version 1)
Quarter: 2014Q2

REPORT INFORMATION
  Report Type: Spontaneous
  Country: US (occurrence: None)
  Receive Date: 20140410
  Receipt Date: 20140410
  Transmission Date: 20141212
  Serious: No
  Sender: FDA-Public Use
  Company Number: None

PATIENT
  Age: 41 Year
  Sex: Female
  Weight: 80.29 kg

DRUGS (4)
  1. CIPROFLOXACIN HCL [Suspect]
     Indication: URINARY TRACT INFECTION
     Dosage: 1 TABLET
     Route: 048
     Dates: start: 20140329, end: 20140402
  2. PRISTIQ [Concomitant]
  3. FINACEA [Concomitant]
  4. TESTOSTERONE [Concomitant]

REACTIONS (4)
  - Urinary tract infection [None]
  - Myalgia [None]
  - Arthralgia [None]
  - Gait disturbance [None]
